FAERS Safety Report 11464139 (Version 1)
Quarter: 2015Q3

REPORT INFORMATION
  Report Type: Spontaneous
  Country: US (occurrence: US)
  Receive Date: 20150831
  Receipt Date: 20150831
  Transmission Date: 20151125
  Serious: No
  Sender: FDA-Public Use
  Company Number: US-ELI_LILLY_AND_COMPANY-US201106006452

PATIENT
  Age: 45 Year
  Sex: Female

DRUGS (3)
  1. NSAID^S [Concomitant]
     Active Substance: UNSPECIFIED INGREDIENT
  2. LYRICA [Concomitant]
     Active Substance: PREGABALIN
  3. CYMBALTA [Suspect]
     Active Substance: DULOXETINE HYDROCHLORIDE
     Indication: FIBROMYALGIA

REACTIONS (3)
  - Swelling [Unknown]
  - Weight increased [Unknown]
  - Abdominal discomfort [Unknown]
